FAERS Safety Report 7951886-5 (Version None)
Quarter: 2011Q4

REPORT INFORMATION
  Report Type: 
  Country: None (occurrence: None)
  Receive Date: 20111201
  Receipt Date: 20111201
  Transmission Date: 20120403
  Serious: Yes (Disabling)
  Sender: FDA-Public Use
  Company Number: None

PATIENT
  Age: 28 Year
  Sex: Female
  Weight: 75.749 kg

DRUGS (1)
  1. PARAGARD T 380A [Suspect]

REACTIONS (4)
  - MEDICAL DEVICE COMPLICATION [None]
  - CERVICAL DISCHARGE [None]
  - DEVICE BREAKAGE [None]
  - DEVICE DISLOCATION [None]
